FAERS Safety Report 10376039 (Version 3)
Quarter: 2014Q4

REPORT INFORMATION
  Report Type: Spontaneous
  Country: US (occurrence: US)
  Receive Date: 20140811
  Receipt Date: 20141121
  Transmission Date: 20150528
  Serious: Yes (Other)
  Sender: FDA-Public Use
  Company Number: US-GLAXOSMITHKLINE-A1083745A

PATIENT
  Sex: Female

DRUGS (20)
  1. DIGOXIN. [Concomitant]
     Active Substance: DIGOXIN
  2. GLYBURIDE. [Concomitant]
     Active Substance: GLYBURIDE
  3. PREMARIN [Concomitant]
     Active Substance: ESTROGENS, CONJUGATED
  4. AMLODIPINE [Concomitant]
     Active Substance: AMLODIPINE BESYLATE
  5. LISINOPRIL. [Concomitant]
     Active Substance: LISINOPRIL
  6. GABAPENTIN. [Concomitant]
     Active Substance: GABAPENTIN
  7. GLYBURIDE. [Concomitant]
     Active Substance: GLYBURIDE
  8. OMEPRAZOLE. [Concomitant]
     Active Substance: OMEPRAZOLE
  9. METFORMIN [Concomitant]
     Active Substance: METFORMIN HYDROCHLORIDE
  10. STOOL SOFTENER [Concomitant]
     Active Substance: DOCUSATE CALCIUM
  11. TYLENOL [Concomitant]
     Active Substance: ACETAMINOPHEN
  12. PROAIR HFA [Concomitant]
     Active Substance: ALBUTEROL SULFATE
  13. BREO ELLIPTA [Concomitant]
     Active Substance: FLUTICASONE FUROATE\VILANTEROL TRIFENATATE
  14. AVANDAMET [Suspect]
     Active Substance: METFORMIN HYDROCHLORIDE\ROSIGLITAZONE MALEATE
     Indication: TYPE 2 DIABETES MELLITUS
     Dosage: 4/1000 MG
     Route: 048
     Dates: end: 20140731
  15. CLONIDINE. [Concomitant]
     Active Substance: CLONIDINE
  16. PRAVASTATIN [Concomitant]
     Active Substance: PRAVASTATIN\PRAVASTATIN SODIUM
  17. ZYRTEC [Concomitant]
     Active Substance: CETIRIZINE HYDROCHLORIDE
  18. PRAVASTATIN [Concomitant]
     Active Substance: PRAVASTATIN\PRAVASTATIN SODIUM
  19. POTASSIUM/MAGNESIUM [Concomitant]
  20. ZINC COMPLEX TABLETS [Concomitant]

REACTIONS (4)
  - Gallbladder disorder [Unknown]
  - Gallbladder operation [Unknown]
  - Hot flush [Not Recovered/Not Resolved]
  - Endosalpingiosis [Unknown]

NARRATIVE: CASE EVENT DATE: 2009
